FAERS Safety Report 9640452 (Version 1)
Quarter: 2013Q4

REPORT INFORMATION
  Report Type: Spontaneous
  Country: US (occurrence: None)
  Receive Date: 20131022
  Receipt Date: 20131022
  Transmission Date: 20140711
  Serious: No
  Sender: FDA-Public Use
  Company Number: None

PATIENT
  Age: 48 Year
  Sex: Female
  Weight: 88.45 kg

DRUGS (14)
  1. PRAVASTATIN SODIUM [Suspect]
     Indication: BLOOD CHOLESTEROL INCREASED
     Dosage: ONE TABLET  ONE AT BEDTIME  ORALLY
     Route: 048
     Dates: start: 20130720, end: 20130915
  2. PRAVASTATIN SODIUM [Suspect]
     Indication: LOW DENSITY LIPOPROTEIN INCREASED
     Dosage: ONE TABLET  ONE AT BEDTIME  ORALLY
     Route: 048
     Dates: start: 20130720, end: 20130915
  3. PRAVASTATIN SODIUM [Suspect]
     Dosage: ONE TABLET  ONE AT BEDTIME  ORALLY
     Route: 048
     Dates: start: 20130720, end: 20130915
  4. TOPAMAX [Concomitant]
  5. ZOLOFT [Concomitant]
  6. DIAZAPAM 10 MG GEL [Concomitant]
  7. LISINOPRIL [Concomitant]
  8. HYDROCHLOROTHIAZIDE [Concomitant]
  9. PREVASTATIN [Concomitant]
  10. MULTIVITAMINS [Concomitant]
  11. B12 [Concomitant]
  12. MAGNEZIUM [Concomitant]
  13. D3 [Concomitant]
  14. GLUCOSOMINE [Concomitant]

REACTIONS (1)
  - Alopecia [None]
